FAERS Safety Report 22194935 (Version 2)
Quarter: 2023Q2

REPORT INFORMATION
  Report Type: Spontaneous
  Country: US (occurrence: US)
  Receive Date: 20230411
  Receipt Date: 20230413
  Transmission Date: 20230721
  Serious: No
  Sender: FDA-Public Use
  Company Number: US-SANOFI-01564210

PATIENT
  Age: 60 Year
  Sex: Male

DRUGS (1)
  1. LANTUS SOLOSTAR [Suspect]
     Active Substance: INSULIN GLARGINE
     Indication: Diabetes mellitus
     Dosage: 28 UNITS QD AND DRUG TREATMENT DURATION:2 MONTHS
     Route: 065
     Dates: start: 20230202

REACTIONS (2)
  - Blood glucose increased [Unknown]
  - Device defective [Unknown]

NARRATIVE: CASE EVENT DATE: 20230223
